FAERS Safety Report 13429264 (Version 4)
Quarter: 2017Q2

REPORT INFORMATION
  Report Type: Spontaneous
  Country: US (occurrence: US)
  Receive Date: 20170411
  Receipt Date: 20170523
  Transmission Date: 20170830
  Serious: Yes (Hospitalization, Other)
  Sender: FDA-Public Use
  Company Number: US-ALLERGAN-1713851US

PATIENT
  Age: 38 Year
  Sex: Male
  Weight: 73.93 kg

DRUGS (1)
  1. ANDRODERM [Suspect]
     Active Substance: TESTOSTERONE
     Indication: HAIR GROWTH ABNORMAL
     Dosage: UNK
     Route: 062
     Dates: start: 20151208, end: 201609

REACTIONS (12)
  - Chest pain [Recovering/Resolving]
  - Anxiety [Unknown]
  - Hyperventilation [Recovering/Resolving]
  - Hypoaesthesia [Unknown]
  - Insomnia [Unknown]
  - Transient ischaemic attack [Unknown]
  - Pulmonary mass [Unknown]
  - Paraesthesia [Unknown]
  - Off label use [Unknown]
  - Dizziness [Unknown]
  - Peripheral swelling [Unknown]
  - Palpitations [Unknown]

NARRATIVE: CASE EVENT DATE: 201512
